FAERS Safety Report 4927023-8 (Version None)
Quarter: 2006Q1

REPORT INFORMATION
  Report Type: 
  Country: None (occurrence: None)
  Receive Date: 20060228
  Receipt Date: 20051005
  Transmission Date: 20060701
  Serious: Yes (Other)
  Sender: FDA-Public Use
  Company Number: US-GLAXOSMITHKLINE-A0577213A

PATIENT
  Age: 47 Year
  Sex: Female
  Weight: 46.8 kg

DRUGS (4)
  1. LAMICTAL [Suspect]
     Indication: DEPRESSION
     Route: 048
     Dates: start: 20050826, end: 20050928
  2. TAGAMET [Concomitant]
     Dosage: 400MG TWICE PER DAY
  3. SINGULAIR [Concomitant]
     Dosage: 10MG PER DAY
  4. CLARITIN [Concomitant]
     Dosage: 10MG PER DAY

REACTIONS (3)
  - DRUG ADMINISTRATION ERROR [None]
  - PRURITUS [None]
  - RASH [None]
